FAERS Safety Report 8094134-0 (Version None)
Quarter: 2012Q1

REPORT INFORMATION
  Report Type: 
  Country: None (occurrence: None)
  Receive Date: 20120130
  Receipt Date: 20120130
  Transmission Date: 20120608
  Serious: Yes (Hospitalization, Other)
  Sender: FDA-Public Use
  Company Number: None

PATIENT
  Age: 59 Year
  Sex: Male
  Weight: 90.718 kg

DRUGS (1)
  1. CETIRIZINE [Suspect]

REACTIONS (1)
  - ATRIAL FIBRILLATION [None]
